FAERS Safety Report 24304988 (Version 1)
Quarter: 2024Q3

REPORT INFORMATION
  Report Type: Spontaneous
  Country: GB (occurrence: None)
  Receive Date: 20240911
  Receipt Date: 20240911
  Transmission Date: 20241017
  Serious: Yes (Hospitalization)
  Sender: ASTRAZENECA
  Company Number: 2024A202512

PATIENT

DRUGS (3)
  1. FULVESTRANT [Suspect]
     Active Substance: FULVESTRANT
     Indication: Product used for unknown indication
     Dosage: UNK
     Dates: start: 20240719
  2. PIQRAY [Suspect]
     Active Substance: ALPELISIB
     Indication: Product used for unknown indication
     Dosage: 150 MG (X 2)
     Dates: start: 20240725
  3. PIQRAY [Suspect]
     Active Substance: ALPELISIB
     Indication: Product used for unknown indication
     Dosage: 150 MG
     Dates: start: 20240820

REACTIONS (10)
  - Anaphylactic reaction [Unknown]
  - Rash [Not Recovered/Not Resolved]
  - Dysphonia [Unknown]
  - Aphonia [Unknown]
  - Pharyngeal swelling [Unknown]
  - Obstructive airways disorder [Unknown]
  - Blood pressure decreased [Unknown]
  - Heart rate increased [Unknown]
  - Pruritus [Unknown]
  - Rash macular [Not Recovered/Not Resolved]

NARRATIVE: CASE EVENT DATE: 20240802
